FAERS Safety Report 9538569 (Version 1)
Quarter: 2013Q3

REPORT INFORMATION
  Report Type: Spontaneous
  Country: US (occurrence: US)
  Receive Date: 20130920
  Receipt Date: 20130920
  Transmission Date: 20140515
  Serious: Yes (Death, Hospitalization)
  Sender: FDA-Public Use
  Company Number: US-PERRIGO-13US009385

PATIENT
  Age: 34 Year
  Sex: Female

DRUGS (3)
  1. ACETAMINOPHEN 650MG ER 544 [Suspect]
     Indication: BACK PAIN
     Dosage: UNKNOWN, DAILY
     Route: 048
  2. TENOFOVIR [Suspect]
     Indication: HIV INFECTION
     Dosage: UNKNOWN, UNKNOWN
     Route: 065
  3. EMTRICITABINE [Suspect]
     Indication: HIV INFECTION
     Dosage: UNKNOWN, UNKNOWN
     Route: 065

REACTIONS (6)
  - Lactic acidosis [Fatal]
  - Pulseless electrical activity [Fatal]
  - Hypotension [Fatal]
  - Tachycardia [Fatal]
  - Somnolence [Fatal]
  - Confusional state [Fatal]
